FAERS Safety Report 8493613-1 (Version None)
Quarter: 2012Q3

REPORT INFORMATION
  Report Type: 
  Country: None (occurrence: None)
  Receive Date: 20120706
  Receipt Date: 20120627
  Transmission Date: 20120928
  Serious: Yes (Other)
  Sender: FDA-Public Use
  Company Number: JP-ASTRAZENECA-2012SE42452

PATIENT
  Age: 50 Year
  Sex: Female

DRUGS (3)
  1. LEUPROLIDE ACETATE [Concomitant]
     Route: 065
  2. TAMOXIFEN CITRATE [Suspect]
     Indication: BREAST CANCER
     Route: 048
  3. GOSERELIN [Suspect]
     Indication: BREAST CANCER
     Route: 058

REACTIONS (1)
  - ORGANISING PNEUMONIA [None]
